FAERS Safety Report 5921410-7 (Version None)
Quarter: 2008Q4

REPORT INFORMATION
  Report Type: 
  Country: None (occurrence: None)
  Receive Date: 20081014
  Receipt Date: 20081008
  Transmission Date: 20090506
  Serious: Yes (Death)
  Sender: FDA-Public Use
  Company Number: CLOF-1000292

PATIENT
  Age: 19 Year
  Sex: Male

DRUGS (1)
  1. CLOFARABINE (CLOFARABINE) SOLUTION FOR INFUSION [Suspect]
     Indication: ACUTE LYMPHOCYTIC LEUKAEMIA
     Dosage: 52 MG/M2, QDX3, INTRAVENOUS
     Route: 042
     Dates: start: 20080917, end: 20080919

REACTIONS (4)
  - BACTERIAL INFECTION [None]
  - BLOOD CULTURE POSITIVE [None]
  - MULTI-ORGAN FAILURE [None]
  - SEPTIC SHOCK [None]
